FAERS Safety Report 11749588 (Version 1)
Quarter: 2015Q4

REPORT INFORMATION
  Report Type: Spontaneous
  Country: US (occurrence: None)
  Receive Date: 20151116
  Receipt Date: 20151116
  Transmission Date: 20160304
  Serious: Yes (Hospitalization)
  Sender: FDA-Public Use
  Company Number: None

PATIENT
  Age: 22 Year
  Sex: Female

DRUGS (1)
  1. ENBREL [Suspect]
     Active Substance: ETANERCEPT
     Indication: ANKYLOSING SPONDYLITIS
     Route: 058
     Dates: start: 20151013, end: 20151103

REACTIONS (7)
  - Injection site swelling [None]
  - Rash [None]
  - Hypersensitivity [None]
  - Systemic infection [None]
  - Injection site erythema [None]
  - Injection site warmth [None]
  - Pneumonia [None]

NARRATIVE: CASE EVENT DATE: 20151103
